FAERS Safety Report 11510338 (Version 1)
Quarter: 2015Q3

REPORT INFORMATION
  Report Type: Spontaneous
  Country: US (occurrence: US)
  Receive Date: 20150915
  Receipt Date: 20150915
  Transmission Date: 20151125
  Serious: No
  Sender: FDA-Public Use
  Company Number: US-JNJFOC-20150302016

PATIENT
  Age: 55 Year
  Sex: Female
  Weight: 54.43 kg

DRUGS (6)
  1. VISINE L.R. [Suspect]
     Active Substance: OXYMETAZOLINE HYDROCHLORIDE
     Route: 047
  2. GNC MULTIVITAMIN [Concomitant]
     Indication: NUTRITIONAL SUPPLEMENTATION
     Route: 065
  3. CENTRUM 50 [Concomitant]
     Indication: PRODUCT USED FOR UNKNOWN INDICATION
     Route: 047
  4. DHA (PRENATAL VITAMINS/MINERALS/OMEGA-3 FATTY ACIDS) [Concomitant]
     Indication: PRODUCT USED FOR UNKNOWN INDICATION
     Route: 047
  5. VISINE L.R. [Suspect]
     Active Substance: OXYMETAZOLINE HYDROCHLORIDE
     Indication: ERYTHEMA
     Route: 047
  6. FISH OIL [Concomitant]
     Active Substance: FISH OIL
     Indication: PRODUCT USED FOR UNKNOWN INDICATION
     Route: 047

REACTIONS (1)
  - Contusion [Recovered/Resolved]
